FAERS Safety Report 16974163 (Version 2)
Quarter: 2019Q4

REPORT INFORMATION
  Report Type: Spontaneous
  Country: US (occurrence: US)
  Receive Date: 20191030
  Receipt Date: 20191101
  Transmission Date: 20200122
  Serious: Yes (Hospitalization, Other)
  Sender: FDA-Public Use
  Company Number: US-PFIZER INC-2019468348

PATIENT
  Age: 88 Year
  Sex: Male

DRUGS (1)
  1. TAFAMIDIS MEGLUMINE [Suspect]
     Active Substance: TAFAMIDIS MEGLUMINE
     Indication: AMYLOIDOSIS
     Dosage: 80 MG, UNK

REACTIONS (14)
  - Dysphagia [Unknown]
  - Acute kidney injury [Unknown]
  - Fall [Unknown]
  - Product use in unapproved indication [Unknown]
  - Spinal fracture [Unknown]
  - Clostridium difficile colitis [Unknown]
  - Osteomyelitis [Unknown]
  - Dizziness [Unknown]
  - Off label use [Unknown]
  - Septic shock [Unknown]
  - Cardiac failure [Unknown]
  - Injury [Unknown]
  - Wound haemorrhage [Unknown]
  - Hypotension [Unknown]

NARRATIVE: CASE EVENT DATE: 2019
